FAERS Safety Report 6672611-4 (Version None)
Quarter: 2010Q2

REPORT INFORMATION
  Report Type: 
  Country: None (occurrence: None)
  Receive Date: 20100408
  Receipt Date: 20100324
  Transmission Date: 20101027
  Serious: Yes (Other)
  Sender: FDA-Public Use
  Company Number: JP-BAYER-201020758GPV

PATIENT
  Age: 81 Year
  Sex: Female

DRUGS (3)
  1. SORAFENIB [Suspect]
     Indication: RENAL CELL CARCINOMA
  2. SORAFENIB [Suspect]
  3. INTERFERON ALFA [Concomitant]
     Indication: RENAL CELL CARCINOMA

REACTIONS (3)
  - HEPATIC FAILURE [None]
  - HYPERTENSION [None]
  - PALMAR-PLANTAR ERYTHRODYSAESTHESIA SYNDROME [None]
